FAERS Safety Report 4459077-X (Version None)
Quarter: 2004Q3

REPORT INFORMATION
  Report Type: 
  Country: None (occurrence: None)
  Receive Date: 20040920
  Receipt Date: 20040920
  Transmission Date: 20050211
  Serious: Yes (Life-Threatening, Hospitalization)
  Sender: FDA-Public Use
  Company Number: None

PATIENT
  Age: 42 Year
  Sex: Female

DRUGS (7)
  1. BENZTROPINE MESYLATE [Suspect]
     Indication: SUICIDE ATTEMPT
  2. PHENYTOIN [Suspect]
     Indication: SUICIDE ATTEMPT
  3. GABAPENTIN [Suspect]
     Indication: SUICIDE ATTEMPT
  4. GABAPENTIN [Concomitant]
  5. BENZTROPINE MESYLATE [Concomitant]
  6. PHENYTOIN [Concomitant]
  7. QUETIAPINE [Concomitant]

REACTIONS (7)
  - CONFUSIONAL STATE [None]
  - DRUG LEVEL INCREASED [None]
  - HYPERNATRAEMIA [None]
  - OXYGEN SATURATION DECREASED [None]
  - PNEUMONIA ASPIRATION [None]
  - RESPIRATORY RATE DECREASED [None]
  - SUICIDE ATTEMPT [None]
